FAERS Safety Report 4537036-6 (Version None)
Quarter: 2004Q4

REPORT INFORMATION
  Report Type: 
  Country: None (occurrence: None)
  Receive Date: 20041220
  Receipt Date: 20041207
  Transmission Date: 20050328
  Serious: Yes (Hospitalization)
  Sender: FDA-Public Use
  Company Number: HQWYE788107DEC04

PATIENT
  Age: 28 Year
  Sex: Female

DRUGS (6)
  1. INDERAL [Suspect]
     Indication: HYPERTENSION
     Dosage: 60 MG 1X PER 1 DAY ORAL
     Route: 048
     Dates: start: 20041107, end: 20041115
  2. INDERAL [Suspect]
     Indication: TACHYARRHYTHMIA
     Dosage: 60 MG 1X PER 1 DAY ORAL
     Route: 048
     Dates: start: 20041107, end: 20041115
  3. MERCAZOLE (THIAMAZOLE,) [Suspect]
     Indication: HYPERTHYROIDISM
     Dosage: 80 MG 1X PER 1 DAY ORAL
     Route: 048
     Dates: start: 20041015, end: 20041106
  4. MEROPEN (MEROPENEM,) [Suspect]
     Dosage: 1 G 1X PER 1 DAY INTRAVENOUS
     Route: 042
     Dates: start: 20041107, end: 20041116
  5. METOPROLOL TARTRATE [Suspect]
     Indication: HYPERTENSION
     Dosage: 60 MG 1X PER 1 DAY ORAL
     Route: 048
     Dates: start: 20041015, end: 20041106
  6. METOPROLOL TARTRATE [Suspect]
     Indication: TACHYARRHYTHMIA
     Dosage: 60 MG 1X PER 1 DAY ORAL
     Route: 048
     Dates: start: 20041015, end: 20041106

REACTIONS (3)
  - AGRANULOCYTOSIS [None]
  - INFECTION [None]
  - PLATELET COUNT DECREASED [None]
